FAERS Safety Report 10252187 (Version 1)
Quarter: 2014Q2

REPORT INFORMATION
  Report Type: Spontaneous
  Country: US (occurrence: US)
  Receive Date: 20140623
  Receipt Date: 20140623
  Transmission Date: 20141212
  Serious: Yes (Death, Congenital Anomaly)
  Sender: FDA-Public Use
  Company Number: US-ELI_LILLY_AND_COMPANY-US201406006588

PATIENT
  Sex: 0

DRUGS (1)
  1. PROZAC [Suspect]
     Indication: PRODUCT USED FOR UNKNOWN INDICATION

REACTIONS (10)
  - Death [Fatal]
  - Mitochondrial myopathy [Unknown]
  - Sleep apnoea syndrome [Unknown]
  - Left ventricular dysfunction [Unknown]
  - Congestive cardiomyopathy [Unknown]
  - Tricuspid valve incompetence [Unknown]
  - Bundle branch block left [Unknown]
  - Congenital musculoskeletal anomaly [Unknown]
  - Cardiac failure congestive [Unknown]
  - Foetal exposure during pregnancy [Recovered/Resolved]
